FAERS Safety Report 5909010-6 (Version None)
Quarter: 2008Q4

REPORT INFORMATION
  Report Type: 
  Country: None (occurrence: None)
  Receive Date: 20081001
  Receipt Date: 20080924
  Transmission Date: 20090506
  Serious: Yes (Death)
  Sender: FDA-Public Use
  Company Number: CERZ-1000285

PATIENT
  Age: 53 Year
  Sex: Male
  Weight: 62 kg

DRUGS (9)
  1. CEREZYME [Suspect]
     Indication: GAUCHER'S DISEASE
     Dosage: 15 U/KG, Q2W, INTRAVENOUS
     Route: 042
     Dates: start: 19990601, end: 20080416
  2. TICLOPIDINE HYDROCHLORIDE [Concomitant]
  3. QUETIAPINE FUMARATE [Concomitant]
  4. MELPERONE (MELPERONE) [Concomitant]
  5. ESCITALOPRAM [Concomitant]
  6. FOLIC ACID [Concomitant]
  7. NIMODIPINE [Concomitant]
  8. ENALAPRIL MALEATE [Concomitant]
  9. HYDROCHLOROTHIAZIDE [Concomitant]

REACTIONS (5)
  - DEPRESSION [None]
  - DISEASE COMPLICATION [None]
  - DISEASE PROGRESSION [None]
  - FAMILY STRESS [None]
  - GAUCHER'S DISEASE [None]
